FAERS Safety Report 6473402-X (Version None)
Quarter: 2009Q4

REPORT INFORMATION
  Report Type: 
  Country: None (occurrence: None)
  Receive Date: 20091204
  Receipt Date: 20090112
  Transmission Date: 20100525
  Serious: Yes (Hospitalization, Other)
  Sender: FDA-Public Use
  Company Number: US-ELI_LILLY_AND_COMPANY-US200811001695

PATIENT
  Sex: Female
  Weight: 45.351 kg

DRUGS (3)
  1. GEMZAR [Suspect]
     Indication: BREAST CANCER STAGE IV
     Dates: start: 20081016, end: 20081023
  2. AVASTIN [Concomitant]
     Indication: BREAST CANCER METASTATIC
     Dates: start: 20081016, end: 20081016
  3. DECADRON                                /CAN/ [Concomitant]
     Indication: PREMEDICATION

REACTIONS (14)
  - ACUTE PRERENAL FAILURE [None]
  - ANAEMIA [None]
  - BILE DUCT STONE [None]
  - CARDIAC FAILURE CONGESTIVE [None]
  - CONGESTIVE CARDIOMYOPATHY [None]
  - DRUG TOXICITY [None]
  - HEPATITIS [None]
  - HYPOTHYROIDISM [None]
  - ILEUS [None]
  - INAPPROPRIATE ANTIDIURETIC HORMONE SECRETION [None]
  - MALIGNANT NEOPLASM PROGRESSION [None]
  - MYOPATHY [None]
  - PERICARDIAL EFFUSION [None]
  - PLEURAL EFFUSION [None]
